FAERS Safety Report 24725958 (Version 1)
Quarter: 2024Q4

REPORT INFORMATION
  Report Type: Spontaneous
  Country: US (occurrence: US)
  Receive Date: 20241212
  Receipt Date: 20241212
  Transmission Date: 20250114
  Serious: Yes (Other)
  Sender: GLAXOSMITHKLINE
  Company Number: US-GSKCCFUS-Case-02151579_AE-118620

PATIENT

DRUGS (1)
  1. TRELEGY ELLIPTA [Suspect]
     Active Substance: FLUTICASONE FUROATE\UMECLIDINIUM BROMIDE\VILANTEROL TRIFENATATE
     Indication: Chronic obstructive pulmonary disease
     Dosage: UNK UNK, QD 200/62.5/25MCG
     Route: 055

REACTIONS (6)
  - Coronary artery bypass [Unknown]
  - Lung disorder [Unknown]
  - Nerve injury [Unknown]
  - Productive cough [Unknown]
  - Drug ineffective [Unknown]
  - Incorrect dose administered [Unknown]
